FAERS Safety Report 6846413-X (Version None)
Quarter: 2010Q3

REPORT INFORMATION
  Report Type: 
  Country: None (occurrence: None)
  Receive Date: 20100715
  Receipt Date: 20080105
  Transmission Date: 20110219
  Serious: No
  Sender: FDA-Public Use
  Company Number: US-PFIZER INC-2007078342

PATIENT
  Sex: Male

DRUGS (3)
  1. CHANTIX [Suspect]
     Indication: SMOKING CESSATION THERAPY
  2. CHANTIX [Suspect]
     Indication: TOBACCO ABUSE
  3. ACCUPRIL [Concomitant]

REACTIONS (9)
  - ABNORMAL DREAMS [None]
  - CHEST PAIN [None]
  - DYSGEUSIA [None]
  - FATIGUE [None]
  - FEELING ABNORMAL [None]
  - HYPERHIDROSIS [None]
  - INFECTION [None]
  - MALAISE [None]
  - MENTAL IMPAIRMENT [None]
